FAERS Safety Report 6202427-4 (Version None)
Quarter: 2009Q2

REPORT INFORMATION
  Report Type: 
  Country: None (occurrence: None)
  Receive Date: 20090526
  Receipt Date: 20090305
  Transmission Date: 20091009
  Serious: Yes (Other)
  Sender: FDA-Public Use
  Company Number: US-PFIZER INC-2009179632

PATIENT

DRUGS (13)
  1. NORVASC [Suspect]
     Indication: HYPERTENSION
     Dosage: 2.5 MG, 1X/DAY
     Dates: start: 20070101, end: 20070101
  2. NORVASC [Suspect]
     Dosage: 5 MG, 1X/DAY
     Dates: start: 20070101
  3. ZOLOFT [Suspect]
     Indication: STRESS
     Dosage: 50 MG, UNK
     Route: 002
     Dates: start: 20070101, end: 20070101
  4. ZOLOFT [Suspect]
     Indication: DEPRESSION
     Dosage: 25 MG, UNK
     Dates: start: 20070101
  5. ZYRTEC [Concomitant]
     Dosage: 10 MG, 1X/DAY
  6. NEXIUM [Concomitant]
     Dosage: 40 MG, 2X/DAY
  7. NEXIUM [Concomitant]
     Dosage: UNK
     Dates: start: 20090305
  8. FENTANYL [Concomitant]
     Dosage: UNK
  9. DARVOCET-N 100 [Concomitant]
     Indication: PAIN
     Dosage: UNK
  10. VESICARE [Concomitant]
     Dosage: UNK
  11. COLACE [Concomitant]
     Dosage: UNK
  12. CYMBALTA [Concomitant]
     Dosage: UNK
  13. SENOKOT [Concomitant]
     Dosage: UNK

REACTIONS (2)
  - DYSPHAGIA [None]
  - MULTIPLE SCLEROSIS [None]
